FAERS Safety Report 7436988 (Version 15)
Quarter: 2013Q1

REPORT INFORMATION
  Report Type: Report from Study
  Country: NL (occurrence: NL)
  Receive Date: 20100625
  Receipt Date: 20130313
  Transmission Date: 20140127
  Serious: Yes (Death, Life-Threatening, Hospitalization, Other)
  Sender: FDA-Public Use
  Company Number: PHHO2010NL09032

PATIENT
  Age: 13 Year
  Sex: Male
  Weight: 54 kg

DRUGS (33)
  1. ACZ885 [Suspect]
     Indication: JUVENILE IDIOPATHIC ARTHRITIS
     Dosage: 4 MG/KG
     Route: 058
     Dates: start: 20100412
  2. ACZ885 [Suspect]
     Dosage: 4 MG/KG
     Route: 058
     Dates: start: 20100609
  3. NO TREATMENT RECEIVED [Suspect]
     Indication: JUVENILE IDIOPATHIC ARTHRITIS
     Dosage: NO TREATMENT
  4. METHOTREXATE [Concomitant]
  5. INDOMETHACIN [Concomitant]
  6. PREDNISONE [Concomitant]
     Indication: HISTIOCYTOSIS HAEMATOPHAGIC
  7. ANEXATE [Concomitant]
  8. PARAFFIN [Concomitant]
  9. BETNELAN [Concomitant]
  10. CALCICHEW [Concomitant]
  11. DAKTACORT [Concomitant]
  12. DI-ADRESON [Concomitant]
  13. EMTHEXATE [Concomitant]
  14. ERYTHROCINE [Concomitant]
  15. FENTANYL [Concomitant]
  16. FOLIC ACID [Concomitant]
  17. FORTUM [Concomitant]
  18. FUROSEMIDE [Concomitant]
  19. INDOMETACIN [Concomitant]
  20. POTASSIUM CHLORIDE [Concomitant]
  21. LOSEC [Concomitant]
  22. METHOTREXAT [Concomitant]
  23. METOJECT [Concomitant]
  24. MIDAZOLAM [Concomitant]
  25. NALOXONE [Concomitant]
  26. OMEPRAZOLE [Concomitant]
  27. PERFALGAN [Concomitant]
  28. PREDNISOLON [Concomitant]
  29. SILKIS [Concomitant]
  30. SPIRONOLACTONE [Concomitant]
  31. TAVEGIL [Concomitant]
  32. CETOMACROGOL [Concomitant]
  33. ZITHROMAX [Concomitant]

REACTIONS (26)
  - Pulmonary hypertension [Fatal]
  - Atelectasis [Fatal]
  - Tachypnoea [Fatal]
  - Mediastinal shift [Fatal]
  - Decreased appetite [Fatal]
  - Malaise [Fatal]
  - Venoocclusive disease [Fatal]
  - Right ventricular hypertrophy [Fatal]
  - Computerised tomogram abnormal [Fatal]
  - Micturition frequency decreased [Fatal]
  - Interstitial lung disease [Fatal]
  - Respiratory failure [Fatal]
  - Heart rate decreased [Fatal]
  - Histiocytosis haematophagic [Fatal]
  - Thrombocytopenia [Fatal]
  - Hepatomegaly [Fatal]
  - Splenomegaly [Fatal]
  - Convulsion [Fatal]
  - Pyrexia [Fatal]
  - Disorientation [Fatal]
  - Depressed level of consciousness [Fatal]
  - Hypotension [Fatal]
  - Abnormal behaviour [Fatal]
  - Electroencephalogram abnormal [Fatal]
  - Somnolence [Unknown]
  - Ascites [Unknown]
